FAERS Safety Report 21335305 (Version 1)
Quarter: 2022Q3

REPORT INFORMATION
  Report Type: Report from Study
  Country: CN (occurrence: None)
  Receive Date: 20220915
  Receipt Date: 20220915
  Transmission Date: 20221026
  Serious: Yes (Death, Other)
  Sender: FDA-Public Use
  Company Number: CN-Unichem Pharmaceuticals (USA) Inc-UCM202209-000909

PATIENT
  Age: 68 Year
  Sex: Male

DRUGS (1)
  1. ALLOPURINOL [Suspect]
     Active Substance: ALLOPURINOL
     Indication: Product used for unknown indication
     Dosage: UNKNOWN

REACTIONS (2)
  - Multiple organ dysfunction syndrome [Fatal]
  - Drug reaction with eosinophilia and systemic symptoms [Fatal]
